FAERS Safety Report 10193556 (Version 1)
Quarter: 2014Q2

REPORT INFORMATION
  Report Type: Spontaneous
  Country: US (occurrence: US)
  Receive Date: 20140524
  Receipt Date: 20140524
  Transmission Date: 20141212
  Serious: No
  Sender: FDA-Public Use
  Company Number: US-SA-2014SA006110

PATIENT
  Sex: 0

DRUGS (2)
  1. LANTUS [Suspect]
     Dosage: DOSE:130 UNIT(S)
     Route: 058
  2. NOVOLOG [Suspect]
     Dosage: 100 AT EACH MEAL
     Route: 065

REACTIONS (2)
  - Pain [Unknown]
  - Blood glucose abnormal [Unknown]
